FAERS Safety Report 4933996-X (Version None)
Quarter: 2006Q1

REPORT INFORMATION
  Report Type: 
  Country: None (occurrence: None)
  Receive Date: 20060307
  Receipt Date: 20060224
  Transmission Date: 20060701
  Serious: Yes (Hospitalization)
  Sender: FDA-Public Use
  Company Number: JP-JNJFOC-20060205861

PATIENT
  Sex: Female
  Weight: 48.1 kg

DRUGS (2)
  1. CRAVIT [Suspect]
     Indication: CHRONIC SINUSITIS
     Route: 048
     Dates: start: 20060209, end: 20060214
  2. MUCODYNE [Concomitant]
     Route: 048
     Dates: start: 20060206, end: 20060214

REACTIONS (1)
  - COLITIS ULCERATIVE [None]
